FAERS Safety Report 10194541 (Version 2)
Quarter: 2014Q2

REPORT INFORMATION
  Report Type: Spontaneous
  Country: KR (occurrence: KR)
  Receive Date: 20140526
  Receipt Date: 20140526
  Transmission Date: 20141212
  Serious: Yes (Death, Hospitalization, Other)
  Sender: FDA-Public Use
  Company Number: KR-RANBAXY-2014RR-81118

PATIENT
  Age: 64 Year
  Sex: Female

DRUGS (5)
  1. SIMVASTATIN [Suspect]
     Indication: DYSLIPIDAEMIA
     Dosage: 20 MG, DAILY
     Route: 065
  2. SIROLIMUS [Interacting]
     Indication: IMMUNOSUPPRESSANT DRUG THERAPY
     Dosage: 2 MG, DAILY
     Route: 065
  3. CISPLATIN [Interacting]
     Indication: LUNG ADENOCARCINOMA STAGE IV
     Dosage: 75 MG/M2 EVERY 3 WEEKS
     Route: 065
  4. GEMCITABINE [Suspect]
     Indication: LUNG ADENOCARCINOMA STAGE IV
     Dosage: 1250 MG/M2 EVERY 3 WEEKS
     Route: 065
  5. CYCLOSPORINE [Concomitant]
     Indication: IMMUNOSUPPRESSANT DRUG THERAPY
     Dosage: UNK
     Route: 065

REACTIONS (3)
  - Rhabdomyolysis [Recovering/Resolving]
  - Renal failure acute [Recovering/Resolving]
  - Drug interaction [Unknown]
